FAERS Safety Report 19490055 (Version 1)
Quarter: 2021Q3

REPORT INFORMATION
  Report Type: Spontaneous
  Country: US (occurrence: US)
  Receive Date: 20210705
  Receipt Date: 20210705
  Transmission Date: 20211014
  Serious: Yes (Other)
  Sender: FDA-Public Use
  Company Number: US-FARMAPROD-202106-0988

PATIENT
  Age: 93 Year
  Sex: Male

DRUGS (16)
  1. TRAZODONE HYDROCHLORIDE. [Concomitant]
     Active Substance: TRAZODONE HYDROCHLORIDE
  2. BACTRIM [Concomitant]
     Active Substance: SULFAMETHOXAZOLE\TRIMETHOPRIM
     Dosage: 400 MG/80 MG
  3. MUCINEX [Concomitant]
     Active Substance: GUAIFENESIN
     Dosage: EXTENDED RELEASE TABLET
  4. DILTIAZEM. [Concomitant]
     Active Substance: DILTIAZEM
     Dosage: EXTENDED RELEASE TABLET
  5. SPIRIVA [Concomitant]
     Active Substance: TIOTROPIUM BROMIDE MONOHYDRATE
     Dosage: CAPSULE WITH DEVICE
  6. OXERVATE [Suspect]
     Active Substance: CENEGERMIN-BKBJ
     Indication: NEUROTROPHIC KERATOPATHY
     Route: 047
     Dates: start: 20210616
  7. MOXIFLOXACIN. [Concomitant]
     Active Substance: MOXIFLOXACIN
  8. LOSARTAN POTASSIUM. [Concomitant]
     Active Substance: LOSARTAN POTASSIUM
  9. MELATONIN [Concomitant]
     Active Substance: MELATONIN
  10. CELEXA [Concomitant]
     Active Substance: CITALOPRAM HYDROBROMIDE
  11. VITAMINE C [Concomitant]
     Active Substance: ASCORBIC ACID
  12. ERYTHROMYCIN. [Concomitant]
     Active Substance: ERYTHROMYCIN
     Dosage: 5 MG/G
  13. REFRESH CLASSIC [Concomitant]
     Active Substance: POLYVINYL ALCOHOL\POVIDONE
  14. ASPIRINE [Concomitant]
     Active Substance: ASPIRIN
  15. PROSCAR [Concomitant]
     Active Substance: FINASTERIDE
  16. FERROUS SULFATE. [Concomitant]
     Active Substance: FERROUS SULFATE
     Dosage: 325(65) MG

REACTIONS (1)
  - Seizure [Unknown]
